FAERS Safety Report 5407496-7 (Version None)
Quarter: 2007Q3

REPORT INFORMATION
  Report Type: 
  Country: None (occurrence: None)
  Receive Date: 20070807
  Receipt Date: 20070727
  Transmission Date: 20080115
  Serious: Yes (Other)
  Sender: FDA-Public Use
  Company Number: US-PFIZER INC-2007063082

PATIENT
  Age: 35 Year
  Sex: Male

DRUGS (2)
  1. DOSTINEX [Suspect]
     Indication: PROLACTINOMA
  2. RAMIPRIL [Concomitant]

REACTIONS (1)
  - MANIA [None]
